FAERS Safety Report 11648028 (Version 5)
Quarter: 2015Q4

REPORT INFORMATION
  Report Type: Report from Study
  Country: MX (occurrence: MX)
  Receive Date: 20151021
  Receipt Date: 20151028
  Transmission Date: 20160304
  Serious: Yes (Death, Other)
  Sender: FDA-Public Use
  Company Number: PHHY2015MX135327

PATIENT
  Sex: Female

DRUGS (1)
  1. ZOMETA [Suspect]
     Active Substance: ZOLEDRONIC ACID
     Indication: PLASMA CELL MYELOMA
     Dosage: 1 DF, EVERY MONTH
     Route: 065

REACTIONS (4)
  - Plasma cell myeloma recurrent [Unknown]
  - Complications of bone marrow transplant [Fatal]
  - Myeloid leukaemia [Fatal]
  - Pulmonary mycosis [Unknown]

NARRATIVE: CASE EVENT DATE: 2011
